FAERS Safety Report 20798227 (Version 1)
Quarter: 2022Q2

REPORT INFORMATION
  Report Type: Spontaneous
  Country: US (occurrence: US)
  Receive Date: 20220507
  Receipt Date: 20220507
  Transmission Date: 20220721
  Serious: No
  Sender: FDA-Public Use
  Company Number: US-SANOFI-01082437

PATIENT
  Age: 47 Year
  Sex: Male

DRUGS (1)
  1. DUPIXENT [Suspect]
     Active Substance: DUPILUMAB
     Indication: Asthma
     Dosage: UNK
     Route: 065

REACTIONS (5)
  - Psoriasis [Recovering/Resolving]
  - Skin irritation [Recovering/Resolving]
  - Dry skin [Recovering/Resolving]
  - Skin exfoliation [Unknown]
  - Rash [Recovering/Resolving]
